FAERS Safety Report 9182887 (Version 1)
Quarter: 2013Q1

REPORT INFORMATION
  Report Type: Spontaneous
  Country: US (occurrence: US)
  Receive Date: 20130322
  Receipt Date: 20130322
  Transmission Date: 20140127
  Serious: Yes (Life-Threatening, Hospitalization, Other)
  Sender: FDA-Public Use
  Company Number: US-ELI_LILLY_AND_COMPANY-US201303003639

PATIENT
  Age: 58 Year
  Sex: Female

DRUGS (4)
  1. CYMBALTA [Suspect]
     Indication: FIBROMYALGIA
     Dosage: UNK, EACH EVENING
     Dates: start: 2007, end: 20080831
  2. VICODIN [Concomitant]
     Dosage: AS NEEDED EVERY FOUR HOURS
  3. LYRICA [Concomitant]
  4. VITAMIN B [Concomitant]

REACTIONS (18)
  - Acute hepatic failure [Unknown]
  - Guillain-Barre syndrome [Unknown]
  - Coma [Unknown]
  - Loss of consciousness [Unknown]
  - Haematemesis [Unknown]
  - Haemorrhage [Unknown]
  - Asthenia [Unknown]
  - Decreased appetite [Unknown]
  - Hyperhidrosis [Unknown]
  - Diarrhoea [Unknown]
  - Abdominal distension [Unknown]
  - Influenza like illness [Unknown]
  - Skin odour abnormal [Unknown]
  - Diabetes mellitus [Unknown]
  - Immune system disorder [Unknown]
  - Dehydration [Unknown]
  - Oral candidiasis [Unknown]
  - Depression [Unknown]
